FAERS Safety Report 7727547-4 (Version None)
Quarter: 2011Q3

REPORT INFORMATION
  Report Type: 
  Country: None (occurrence: None)
  Receive Date: 20110902
  Receipt Date: 20110824
  Transmission Date: 20111222
  Serious: Yes (Other)
  Sender: FDA-Public Use
  Company Number: BG-UCBSA-029058

PATIENT
  Sex: Female
  Weight: 85 kg

DRUGS (6)
  1. LACOSAMIDE [Suspect]
     Indication: EPILEPSY
     Dosage: INVESTIGATIONAL PRODUCT
     Route: 048
     Dates: start: 20100807, end: 20110306
  2. LACOSAMIDE [Suspect]
     Dosage: COMMERCIAL PRODUCT
  3. REGULON [Concomitant]
     Indication: CONTRACEPTION
     Dosage: 1+6
     Route: 048
     Dates: start: 20080101, end: 20110228
  4. EPITRIGINE [Concomitant]
     Indication: EPILEPSY
     Route: 048
     Dates: start: 20070104
  5. NEUROTOPE R [Concomitant]
     Indication: EPILEPSY
     Route: 048
     Dates: start: 20100904
  6. LINIPRIL [Concomitant]
     Indication: HYPERTENSION
     Route: 048
     Dates: start: 20050101

REACTIONS (2)
  - ABORTION INDUCED [None]
  - PREGNANCY [None]
